FAERS Safety Report 5125906-X (Version None)
Quarter: 2006Q4

REPORT INFORMATION
  Report Type: 
  Country: None (occurrence: None)
  Receive Date: 20061012
  Receipt Date: 20061010
  Transmission Date: 20070319
  Serious: Yes (Hospitalization)
  Sender: FDA-Public Use
  Company Number: FR-GLAXOSMITHKLINE-B0441602A

PATIENT
  Age: 3 Year
  Sex: Female
  Weight: 15 kg

DRUGS (3)
  1. CLAMOXYL [Suspect]
     Dosage: 1UNIT SINGLE DOSE
     Route: 048
     Dates: start: 20060923, end: 20060923
  2. PYOSTACINE [Concomitant]
     Indication: ABSCESS
     Route: 065
     Dates: start: 20060901, end: 20060901
  3. OXACILLIN [Concomitant]
     Route: 065
     Dates: start: 20060901, end: 20060901

REACTIONS (4)
  - ANGIONEUROTIC OEDEMA [None]
  - ERYTHEMA [None]
  - FACE OEDEMA [None]
  - PRURITUS [None]
